FAERS Safety Report 8520463-X (Version None)
Quarter: 2012Q3

REPORT INFORMATION
  Report Type: 
  Country: None (occurrence: None)
  Receive Date: 20120709
  Receipt Date: 20120621
  Transmission Date: 20120928
  Serious: Yes (Other)
  Sender: FDA-Public Use
  Company Number: 2012P1027781

PATIENT
  Age: 49 Year
  Sex: Female
  Weight: 98.8842 kg

DRUGS (8)
  1. SINGULAIR [Concomitant]
  2. THYROID TABLET [Concomitant]
  3. HYDROCORTISONE 1%-P CREAM [Suspect]
     Indication: RASH
     Dosage: ;BID;TOP
     Route: 061
     Dates: start: 20050101, end: 20050101
  4. HYDROCORTISONE 1%-P CREAM [Suspect]
     Indication: FUNGAL INFECTION
     Dosage: ;BID;TOP
     Route: 061
     Dates: start: 20050101, end: 20050101
  5. LORAZEPAM [Concomitant]
  6. AZITHROMYCIN [Concomitant]
  7. PROMETHAZINE [Suspect]
     Dosage: ;PO
     Route: 048
  8. SEROQUEL [Concomitant]

REACTIONS (3)
  - SLEEP APNOEA SYNDROME [None]
  - DRUG HYPERSENSITIVITY [None]
  - GRAND MAL CONVULSION [None]
